FAERS Safety Report 18410456 (Version 2)
Quarter: 2020Q4

REPORT INFORMATION
  Report Type: Spontaneous
  Country: FR (occurrence: FR)
  Receive Date: 20201021
  Receipt Date: 20201030
  Transmission Date: 20210114
  Serious: Yes (Hospitalization)
  Sender: FDA-Public Use
  Company Number: FR-OTSUKA-2020_025462

PATIENT
  Sex: Male
  Weight: 2.8 kg

DRUGS (4)
  1. ARIPIPRAZOLE. [Suspect]
     Active Substance: ARIPIPRAZOLE
     Indication: BIPOLAR DISORDER
     Dosage: 15 MG, QD
     Route: 064
     Dates: start: 20200104, end: 20200907
  2. LARGACTIL [Suspect]
     Active Substance: CHLORPROMAZINE
     Indication: BIPOLAR DISORDER
     Dosage: 3 DF, QD
     Route: 064
     Dates: start: 202004, end: 20200901
  3. LANSOPRAZOLE. [Concomitant]
     Active Substance: LANSOPRAZOLE
     Indication: PRODUCT USED FOR UNKNOWN INDICATION
     Dosage: 15 MG, QD
     Route: 064
     Dates: start: 20200818, end: 20200907
  4. PRAZEPAM [Suspect]
     Active Substance: PRAZEPAM
     Indication: BIPOLAR DISORDER
     Dosage: 40 MG, QD
     Route: 064
     Dates: start: 2020, end: 20200907

REACTIONS (4)
  - Hypotonia neonatal [Recovered/Resolved]
  - Neonatal hypoxia [Recovered/Resolved]
  - Poor sucking reflex [Recovered/Resolved]
  - Foetal exposure during pregnancy [Unknown]

NARRATIVE: CASE EVENT DATE: 20200104
